FAERS Safety Report 7965626-7 (Version None)
Quarter: 2011Q4

REPORT INFORMATION
  Report Type: 
  Country: None (occurrence: None)
  Receive Date: 20111208
  Receipt Date: 20111130
  Transmission Date: 20120403
  Serious: Yes (Death)
  Sender: FDA-Public Use
  Company Number: JP-BAXTER-2011BH037788

PATIENT
  Sex: Male
  Weight: 60 kg

DRUGS (2)
  1. EXTRANEAL [Suspect]
     Indication: RENAL FAILURE CHRONIC
     Route: 033
     Dates: start: 20110225, end: 20111128
  2. DIANEAL LOW CALCIUM W/ DEXTROSE 1.5% [Suspect]
     Indication: RENAL FAILURE CHRONIC
     Route: 033
     Dates: start: 20110225, end: 20111128

REACTIONS (1)
  - MARASMUS [None]
